FAERS Safety Report 16479233 (Version 1)
Quarter: 2019Q2

REPORT INFORMATION
  Report Type: Spontaneous
  Country: US (occurrence: US)
  Receive Date: 20190626
  Receipt Date: 20190626
  Transmission Date: 20190711
  Serious: No
  Sender: FDA-Public Use
  Company Number: US-SAOL THERAPEUTICS-2018SAO01135

PATIENT
  Age: 15 Year
  Sex: Male
  Weight: 54.79 kg

DRUGS (5)
  1. LIORESAL [Suspect]
     Active Substance: BACLOFEN
     Dosage: 430 ?G, \DAY
     Dates: start: 20181220
  2. LIORESAL [Suspect]
     Active Substance: BACLOFEN
     Indication: BRAIN INJURY
     Dosage: 1721.7 ?G, \DAY; DOSE INCREASED 20%
     Route: 037
     Dates: start: 20181215, end: 20181220
  3. LIORESAL [Suspect]
     Active Substance: BACLOFEN
     Indication: BRAIN INJURY
     Dosage: UNK
     Dates: start: 20181210
  4. LIORESAL [Suspect]
     Active Substance: BACLOFEN
     Indication: MUSCLE SPASTICITY
     Dosage: 358 ?G, \DAY
     Route: 037
     Dates: start: 20181210, end: 20181214
  5. LIORESAL [Suspect]
     Active Substance: BACLOFEN
     Indication: MUSCLE SPASTICITY
     Dosage: 358 ?G, \DAY
     Route: 037
     Dates: start: 20181214, end: 20181215

REACTIONS (2)
  - Device programming error [Recovered/Resolved]
  - Urinary tract infection [Unknown]

NARRATIVE: CASE EVENT DATE: 20181215
